FAERS Safety Report 17938908 (Version 2)
Quarter: 2020Q3

REPORT INFORMATION
  Report Type: Spontaneous
  Country: JP (occurrence: JP)
  Receive Date: 20200624
  Receipt Date: 20200702
  Transmission Date: 20201103
  Serious: Yes (Other)
  Sender: FDA-Public Use
  Company Number: JP-ASTRAZENECA-2020SE78058

PATIENT
  Age: 56 Year
  Sex: Female

DRUGS (6)
  1. LOXONIN [Concomitant]
     Active Substance: LOXOPROFEN SODIUM
  2. TAGRISSO [Suspect]
     Active Substance: OSIMERTINIB
     Indication: NON-SMALL CELL LUNG CANCER
     Route: 048
     Dates: start: 20200603, end: 20200610
  3. MUCOSTA [Concomitant]
     Active Substance: REBAMIPIDE
  4. RANMARK [Concomitant]
     Active Substance: DENOSUMAB
  5. MEDICON [Concomitant]
     Active Substance: DEXTROMETHORPHAN HYDROBROMIDE
  6. DENOTAS [Concomitant]
     Active Substance: CALCIUM CARBONATE\CHOLECALCIFEROL\MAGNESIUM CARBONATE

REACTIONS (2)
  - Dermatitis allergic [Recovered/Resolved]
  - Diarrhoea [Recovered/Resolved]

NARRATIVE: CASE EVENT DATE: 20200610
